FAERS Safety Report 15004588 (Version 1)
Quarter: 2018Q2

REPORT INFORMATION
  Report Type: Spontaneous
  Country: US (occurrence: US)
  Receive Date: 20180524
  Receipt Date: 20180524
  Transmission Date: 20180711
  Serious: Yes (Disabling, Other)
  Sender: FDA-Public Use
  Company Number: None

PATIENT
  Age: 41 Year
  Sex: Female
  Weight: 58.5 kg

DRUGS (14)
  1. SPIRONOLACTONE. [Concomitant]
     Active Substance: SPIRONOLACTONE
  2. ALPRAZOLAM. [Concomitant]
     Active Substance: ALPRAZOLAM
  3. CETIRIZINE [Concomitant]
     Active Substance: CETIRIZINE HYDROCHLORIDE
  4. HYPOSENSITIZATION INJECTIONS [Concomitant]
  5. ROPINIROLE. [Suspect]
     Active Substance: ROPINIROLE
     Indication: PERIODIC LIMB MOVEMENT DISORDER
     Dosage: ?          QUANTITY:2 DF DOSAGE FORM;?
     Route: 048
     Dates: start: 20180406, end: 20180428
  6. TRAZODONE [Concomitant]
     Active Substance: TRAZODONE HYDROCHLORIDE
  7. NAPROXEN. [Concomitant]
     Active Substance: NAPROXEN
  8. IBUPROFEN. [Concomitant]
     Active Substance: IBUPROFEN
  9. VENLAFAXINE [Concomitant]
     Active Substance: VENLAFAXINE HYDROCHLORIDE
  10. MONTELEUKAST [Concomitant]
     Active Substance: MONTELUKAST SODIUM
  11. HYDROXYZINE [Concomitant]
     Active Substance: HYDROXYZINE HYDROCHLORIDE
  12. AZELASTINE. [Concomitant]
     Active Substance: AZELASTINE HYDROCHLORIDE
  13. FLUTICOSONE [Concomitant]
  14. ACETOMINOPHEN [Concomitant]
     Active Substance: ACETAMINOPHEN

REACTIONS (19)
  - Therapy non-responder [None]
  - Face oedema [None]
  - Orthostatic heart rate response increased [None]
  - Agitation [None]
  - Pollakiuria [None]
  - Weight decreased [None]
  - Asthenia [None]
  - Anxiety [None]
  - Paraesthesia [None]
  - Hyperhidrosis [None]
  - Therapy change [None]
  - Impulse-control disorder [None]
  - Tremor [None]
  - Thirst [None]
  - Panic attack [None]
  - Abnormal behaviour [None]
  - Lethargy [None]
  - Dry mouth [None]
  - Thinking abnormal [None]

NARRATIVE: CASE EVENT DATE: 20180430
